FAERS Safety Report 9061492 (Version 1)
Quarter: 2013Q1

REPORT INFORMATION
  Report Type: Spontaneous
  Country: US (occurrence: None)
  Receive Date: 20130118
  Receipt Date: 20130118
  Transmission Date: 20140127
  Serious: Yes (Death)
  Sender: FDA-Public Use
  Company Number: 2013P1000335

PATIENT
  Age: 24 Year
  Sex: Male

DRUGS (1)
  1. BUTALBITAL,  ACETAMINOPHEN  +  CAFFEINE [Suspect]
     Indication: COMPLETED SUICIDE
     Dosage: ;  PO?UNKNOWN  -  UNKNOWN
     Route: 048

REACTIONS (2)
  - Completed suicide [None]
  - Unevaluable event [None]
